FAERS Safety Report 9611888 (Version 1)
Quarter: 2013Q4

REPORT INFORMATION
  Report Type: Report from Study
  Country: CZ (occurrence: CZ)
  Receive Date: 20131010
  Receipt Date: 20131010
  Transmission Date: 20140711
  Serious: Yes (Hospitalization, Disabling)
  Sender: FDA-Public Use
  Company Number: PHHY2013CZ113435

PATIENT
  Age: 80 Year
  Sex: Female

DRUGS (2)
  1. TASIGNA [Suspect]
     Indication: CHRONIC MYELOID LEUKAEMIA
     Dosage: 750 MG PER DAY
  2. NO TREATMENT RECEIVED [Suspect]

REACTIONS (1)
  - Haemorrhage [Recovering/Resolving]
